FAERS Safety Report 5657354-8 (Version None)
Quarter: 2008Q1

REPORT INFORMATION
  Report Type: 
  Country: None (occurrence: None)
  Receive Date: 20080310
  Receipt Date: 20080221
  Transmission Date: 20080703
  Serious: Yes (Disabling, Other)
  Sender: FDA-Public Use
  Company Number: GB-ASTRAZENECA-2008SE01292

PATIENT
  Age: 77 Year
  Sex: Female
  Weight: 48 kg

DRUGS (8)
  1. CANDESARTAN CILEXETIL [Suspect]
     Route: 048
  2. BOSENTAN [Suspect]
     Indication: PULMONARY HYPERTENSION
     Route: 065
     Dates: start: 20070920
  3. FUROSEMIDE [Concomitant]
     Indication: OEDEMA
     Route: 065
     Dates: start: 20070926
  4. OMEPRAZOLE [Concomitant]
     Indication: GASTRITIS
     Route: 065
     Dates: start: 20041214
  5. ACETAMINOPHEN [Concomitant]
     Indication: PAIN
     Route: 065
     Dates: start: 20070205
  6. PRAVASTATIN [Concomitant]
     Indication: HYPERCHOLESTEROLAEMIA
     Route: 065
     Dates: start: 20070926
  7. SPIRONOLACTONE [Concomitant]
     Indication: OEDEMA
     Route: 065
     Dates: start: 20070813
  8. TILDIEM RETARD [Concomitant]
     Indication: HYPERTENSION
     Route: 065
     Dates: start: 20051129

REACTIONS (1)
  - HYPOMANIA [None]
